FAERS Safety Report 17035867 (Version 2)
Quarter: 2019Q4

REPORT INFORMATION
  Report Type: Spontaneous
  Country: US (occurrence: US)
  Receive Date: 20191115
  Receipt Date: 20191122
  Transmission Date: 20200122
  Serious: No
  Sender: FDA-Public Use
  Company Number: US-SUNOVION-2019SUN004816

PATIENT
  Sex: Female
  Weight: 61 kg

DRUGS (1)
  1. LATUDA [Suspect]
     Active Substance: LURASIDONE HYDROCHLORIDE
     Dosage: UNK
     Route: 048
     Dates: start: 201703

REACTIONS (9)
  - Abdominal pain upper [Unknown]
  - Feeling abnormal [Unknown]
  - Eating disorder [Unknown]
  - Gastrooesophageal reflux disease [Unknown]
  - Anxiety [Unknown]
  - Paranoia [Unknown]
  - Product dose omission [Unknown]
  - Product administration error [Unknown]
  - Somnolence [Unknown]
